FAERS Safety Report 6819893-3 (Version None)
Quarter: 2010Q3

REPORT INFORMATION
  Report Type: 
  Country: None (occurrence: None)
  Receive Date: 20100707
  Receipt Date: 20100625
  Transmission Date: 20110219
  Serious: Yes (Other)
  Sender: FDA-Public Use
  Company Number: JP-ROCHE-705190

PATIENT
  Sex: Female

DRUGS (7)
  1. CAPECITABINE [Suspect]
     Indication: COLON CANCER
     Route: 048
     Dates: start: 20090729, end: 20090811
  2. CAPECITABINE [Suspect]
     Route: 048
     Dates: start: 20090819, end: 20090901
  3. CAPECITABINE [Suspect]
     Route: 048
     Dates: start: 20090916, end: 20090929
  4. CAPECITABINE [Suspect]
     Route: 048
     Dates: start: 20091007, end: 20091020
  5. CAPECITABINE [Suspect]
     Route: 048
     Dates: start: 20091028, end: 20091110
  6. PYDOXAL [Concomitant]
     Dosage: DRUG NAME: PYDOXAL TAB(PYRIDOXAL PHOSPHATE)
     Route: 048
     Dates: start: 20090729, end: 20091110
  7. MAGNESIUM OXIDE [Concomitant]
     Dosage: NOTE: DOSAGE IS UNCERTAIN. REPORTED AS TAKEN AS NEEDED.
     Route: 048
     Dates: start: 20090729, end: 20091110

REACTIONS (1)
  - PUNCTATE KERATITIS [None]
